FAERS Safety Report 6908319-7 (Version None)
Quarter: 2010Q3

REPORT INFORMATION
  Report Type: 
  Country: None (occurrence: None)
  Receive Date: 20100803
  Receipt Date: 20100726
  Transmission Date: 20110219
  Serious: Yes (Hospitalization, Other)
  Sender: FDA-Public Use
  Company Number: 2009SP041027

PATIENT
  Age: 22 Year
  Sex: Female
  Weight: 113.3993 kg

DRUGS (1)
  1. NUVARING [Suspect]
     Indication: CONTRACEPTION
     Dosage: ; VAG
     Route: 067
     Dates: start: 20060301, end: 20071201

REACTIONS (10)
  - ATELECTASIS [None]
  - HEADACHE [None]
  - HEPATIC CYST [None]
  - HEPATIC MASS [None]
  - LUNG NEOPLASM [None]
  - OEDEMA PERIPHERAL [None]
  - PAIN IN EXTREMITY [None]
  - PALPITATIONS [None]
  - PLEURAL EFFUSION [None]
  - PULMONARY EMBOLISM [None]
